FAERS Safety Report 14089024 (Version 5)
Quarter: 2019Q4

REPORT INFORMATION
  Report Type: Report from Study
  Country: GB (occurrence: GB)
  Receive Date: 20171014
  Receipt Date: 20191016
  Transmission Date: 20200122
  Serious: Yes (Hospitalization, Other)
  Sender: FDA-Public Use
  Company Number: GB-BRISTOL-MYERS SQUIBB COMPANY-BMS-2017-014875

PATIENT
  Sex: Female

DRUGS (1)
  1. ABATACEPT [Suspect]
     Active Substance: ABATACEPT
     Indication: RHEUMATOID ARTHRITIS
     Dosage: 125 MG, QWK
     Route: 058
     Dates: start: 20170104

REACTIONS (12)
  - Nerve compression [Unknown]
  - Ill-defined disorder [Unknown]
  - Viral infection [Unknown]
  - Rhinorrhoea [Unknown]
  - Condition aggravated [Recovered/Resolved]
  - Toothache [Unknown]
  - Lower respiratory tract infection [Unknown]
  - Nasopharyngitis [Unknown]
  - Eye pruritus [Unknown]
  - Tooth disorder [Unknown]
  - Nodule [Unknown]
  - Arthropathy [Unknown]
